FAERS Safety Report 9324611 (Version 1)
Quarter: 2013Q2

REPORT INFORMATION
  Report Type: Spontaneous
  Country: US (occurrence: US)
  Receive Date: 20130603
  Receipt Date: 20130603
  Transmission Date: 20140414
  Serious: Yes (Hospitalization)
  Sender: FDA-Public Use
  Company Number: US-GLAXOSMITHKLINE-A1024916A

PATIENT
  Age: 36 Year
  Sex: Female

DRUGS (1)
  1. BENLYSTA [Suspect]
     Indication: SYSTEMIC LUPUS ERYTHEMATOSUS
     Route: 042
     Dates: end: 201211

REACTIONS (4)
  - Malaise [Recovered/Resolved]
  - Cheilitis [Recovered/Resolved]
  - Glossitis [Recovered/Resolved]
  - Ear infection [Recovered/Resolved]
